FAERS Safety Report 11870841 (Version 1)
Quarter: 2015Q4

REPORT INFORMATION
  Report Type: Spontaneous
  Country: US (occurrence: None)
  Receive Date: 20151224
  Receipt Date: 20151224
  Transmission Date: 20160305
  Serious: Yes (Hospitalization)
  Sender: FDA-Public Use
  Company Number: None

PATIENT
  Age: 73 Year
  Sex: Female
  Weight: 78 kg

DRUGS (1)
  1. FECAL MICROBIOTA PREPARATION OPENBIOME [Suspect]
     Active Substance: FECAL MICROBIOTA
     Indication: CLOSTRIDIUM DIFFICILE COLITIS
     Dosage: VIA COLONOSCOPY TO CESSION
     Dates: start: 20151216

REACTIONS (3)
  - Abdominal pain [None]
  - Hypotension [None]
  - Pyrexia [None]

NARRATIVE: CASE EVENT DATE: 20151220
